FAERS Safety Report 4727360-6 (Version None)
Quarter: 2005Q3

REPORT INFORMATION
  Report Type: 
  Country: None (occurrence: None)
  Receive Date: 20050727
  Receipt Date: 20050727
  Transmission Date: 20060218
  Serious: Yes (Life-Threatening, Disabling)
  Sender: FDA-Public Use
  Company Number: None

PATIENT
  Age: 66 Year
  Sex: Male
  Weight: 69.4003 kg

DRUGS (4)
  1. ZOCOR [Suspect]
     Indication: BLOOD CHOLESTEROL INCREASED
     Dosage: 20MG TAB ONCE/DAY
     Dates: start: 19990301, end: 20050214
  2. LISINOPRIL [Concomitant]
  3. ASACOL [Concomitant]
  4. ALLEGRA [Concomitant]

REACTIONS (7)
  - BEDRIDDEN [None]
  - HEPATIC ENZYME INCREASED [None]
  - JOINT SWELLING [None]
  - MOBILITY DECREASED [None]
  - MUSCLE SPASMS [None]
  - OEDEMA PERIPHERAL [None]
  - PAIN IN EXTREMITY [None]
